FAERS Safety Report 14581643 (Version 12)
Quarter: 2024Q2

REPORT INFORMATION
  Report Type: Spontaneous
  Country: BR (occurrence: BR)
  Receive Date: 20180228
  Receipt Date: 20240618
  Transmission Date: 20240716
  Serious: Yes (Hospitalization, Other)
  Sender: FDA-Public Use
  Company Number: BR-GLAXOSMITHKLINE-BR2016GSK151636

PATIENT

DRUGS (6)
  1. BENLYSTA [Suspect]
     Active Substance: BELIMUMAB
     Indication: Systemic lupus erythematosus
     Dosage: 600 MG
     Route: 042
     Dates: start: 20160921
  2. BENLYSTA [Suspect]
     Active Substance: BELIMUMAB
     Dosage: 400 MG (6 WITH 400 MG)
     Dates: start: 20160921
  3. BENLYSTA [Suspect]
     Active Substance: BELIMUMAB
     Dosage: 120 MG, Q4W
     Route: 042
     Dates: start: 20160921
  4. BENLYSTA [Suspect]
     Active Substance: BELIMUMAB
     Dosage: 720 MG, Q4W (6 OF 120 MG)
     Dates: start: 20160921
  5. BENLYSTA [Suspect]
     Active Substance: BELIMUMAB
     Dosage: UNK, 6X400MG
     Route: 042
     Dates: start: 20160921
  6. SULFAMETHOXAZOLE\TRIMETHOPRIM [Concomitant]
     Active Substance: SULFAMETHOXAZOLE\TRIMETHOPRIM
     Indication: Product used for unknown indication
     Dosage: UNK

REACTIONS (16)
  - Migraine [Not Recovered/Not Resolved]
  - Headache [Not Recovered/Not Resolved]
  - Varicose vein operation [Unknown]
  - Weight decreased [Recovered/Resolved]
  - Nasopharyngitis [Not Recovered/Not Resolved]
  - Urinary tract infection [Recovered/Resolved]
  - Pain [Unknown]
  - Sinusitis [Recovered/Resolved]
  - Rhinitis [Recovered/Resolved]
  - Condition aggravated [Recovered/Resolved]
  - Nasal congestion [Recovered/Resolved]
  - Malaise [Recovered/Resolved]
  - Discomfort [Unknown]
  - Product dose omission issue [Unknown]
  - Inappropriate schedule of product administration [Unknown]
  - Circumstance or information capable of leading to medication error [Unknown]

NARRATIVE: CASE EVENT DATE: 20160921
